FAERS Safety Report 12299763 (Version 1)
Quarter: 2016Q2

REPORT INFORMATION
  Report Type: Spontaneous
  Country: TR (occurrence: TR)
  Receive Date: 20160425
  Receipt Date: 20160425
  Transmission Date: 20160815
  Serious: Yes (Other)
  Sender: FDA-Public Use
  Company Number: PHHY2016TR053902

PATIENT
  Age: 75 Year
  Sex: Male

DRUGS (3)
  1. STALEVO [Suspect]
     Active Substance: CARBIDOPA\ENTACAPONE\LEVODOPA
     Indication: PARKINSON^S DISEASE
     Dosage: 4 DF (200/50/12.5 MG), QD
     Route: 065
  2. AZILECT [Suspect]
     Active Substance: RASAGILINE MESYLATE
     Indication: PARKINSON^S DISEASE
     Dosage: 1 MG, QD
     Route: 065
  3. COUMADIN [Concomitant]
     Active Substance: WARFARIN SODIUM
     Indication: CARDIAC VALVE DISEASE
     Dosage: UNK
     Route: 065

REACTIONS (5)
  - Tremor [Unknown]
  - Hallucination [Unknown]
  - Delirium [Unknown]
  - Syncope [Unknown]
  - Altered state of consciousness [Unknown]
